FAERS Safety Report 11335938 (Version 1)
Quarter: 2015Q3

REPORT INFORMATION
  Report Type: Spontaneous
  Country: US (occurrence: None)
  Receive Date: 20150731
  Receipt Date: 20150731
  Transmission Date: 20151125
  Serious: Yes (Hospitalization)
  Sender: FDA-Public Use
  Company Number: None

PATIENT
  Age: 62 Year
  Sex: Male

DRUGS (2)
  1. CLOPIDOGREL [Suspect]
     Active Substance: CLOPIDOGREL BISULFATE
     Dosage: MG
     Route: 048
     Dates: start: 20140830
  2. DABIGATRAN [Suspect]
     Active Substance: DABIGATRAN
     Indication: ATRIAL FIBRILLATION
     Route: 048
     Dates: start: 20130501

REACTIONS (5)
  - Large intestine polyp [None]
  - Haematochezia [None]
  - Gastric haemorrhage [None]
  - Gastritis [None]
  - Haemorrhoids [None]

NARRATIVE: CASE EVENT DATE: 20141223
